FAERS Safety Report 11189380 (Version 1)
Quarter: 2015Q2

REPORT INFORMATION
  Report Type: Report from Study
  Country: US (occurrence: US)
  Receive Date: 20150615
  Receipt Date: 20150615
  Transmission Date: 20150821
  Serious: Yes (Other)
  Sender: FDA-Public Use
  Company Number: US-ABBVIE-15K-163-1405414-00

PATIENT
  Age: 52 Year
  Sex: Female
  Weight: 49.94 kg

DRUGS (2)
  1. HUMIRA [Suspect]
     Active Substance: ADALIMUMAB
     Indication: PSORIATIC ARTHROPATHY
     Route: 065
     Dates: start: 2012, end: 2013
  2. TRAMADOL [Suspect]
     Active Substance: TRAMADOL
     Indication: PAIN
     Route: 065
     Dates: start: 2013, end: 2013

REACTIONS (7)
  - Craniocerebral injury [Not Recovered/Not Resolved]
  - Road traffic accident [Not Recovered/Not Resolved]
  - Psoriatic arthropathy [Unknown]
  - Seizure [Unknown]
  - Pain [Unknown]
  - Concussion [Unknown]
  - Post-traumatic neck syndrome [Unknown]

NARRATIVE: CASE EVENT DATE: 2013
